FAERS Safety Report 16868574 (Version 1)
Quarter: 2019Q4

REPORT INFORMATION
  Report Type: Spontaneous
  Country: US (occurrence: US)
  Receive Date: 20190930
  Receipt Date: 20190930
  Transmission Date: 20200122
  Serious: No
  Sender: FDA-Public Use
  Company Number: None

PATIENT
  Age: 63 Year
  Sex: Male
  Weight: 58.01 kg

DRUGS (4)
  1. CAPECITABINE. [Suspect]
     Active Substance: CAPECITABINE
     Indication: OESOPHAGEAL CARCINOMA
     Dosage: 500 MG ORAL 4 QAM AND 3 QPM?
     Route: 048
  2. NEXIUM [Concomitant]
     Active Substance: ESOMEPRAZOLE MAGNESIUM
  3. ASPIRIN 81 [Concomitant]
     Active Substance: ASPIRIN
  4. IBU [Concomitant]
     Active Substance: IBUPROFEN

REACTIONS (2)
  - Dry skin [None]
  - Nausea [None]
